FAERS Safety Report 12578516 (Version 3)
Quarter: 2016Q3

REPORT INFORMATION
  Report Type: Spontaneous
  Country: US (occurrence: US)
  Receive Date: 20160721
  Receipt Date: 20160811
  Transmission Date: 20161109
  Serious: Yes (Hospitalization)
  Sender: FDA-Public Use
  Company Number: US-HORIZON-RAV-0140-2016

PATIENT
  Age: 25 Year
  Sex: Female

DRUGS (1)
  1. RAVICTI [Suspect]
     Active Substance: GLYCEROL PHENYLBUTYRATE
     Indication: ARGINASE DEFICIENCY
     Dosage: 5 ML TID
     Route: 048
     Dates: start: 20140212

REACTIONS (2)
  - Medical device site infection [Recovering/Resolving]
  - Hyperammonaemia [Recovered/Resolved]
